FAERS Safety Report 14744807 (Version 1)
Quarter: 2018Q2

REPORT INFORMATION
  Report Type: Spontaneous
  Country: US (occurrence: US)
  Receive Date: 20180405
  Receipt Date: 20180405
  Transmission Date: 20180711
  Serious: Yes (Disabling)
  Sender: FDA-Public Use
  Company Number: None

PATIENT
  Age: 67 Year
  Sex: Female
  Weight: 83.01 kg

DRUGS (1)
  1. AMITRIPTYLINE HCL [Suspect]
     Active Substance: AMITRIPTYLINE
     Indication: COUGH
     Dosage: ?          QUANTITY:1 DF DOSAGE FORM;?
     Route: 048
     Dates: start: 20171211, end: 20171224

REACTIONS (13)
  - Headache [None]
  - Confusional state [None]
  - Hyperhidrosis [None]
  - Anal incontinence [None]
  - Nausea [None]
  - Chills [None]
  - Lethargy [None]
  - Dry mouth [None]
  - Diarrhoea [None]
  - Feeling abnormal [None]
  - Weight decreased [None]
  - Fatigue [None]
  - Decreased appetite [None]

NARRATIVE: CASE EVENT DATE: 20171224
